FAERS Safety Report 15187474 (Version 3)
Quarter: 2018Q3

REPORT INFORMATION
  Report Type: Spontaneous
  Country: CA (occurrence: CA)
  Receive Date: 20180723
  Receipt Date: 20180830
  Transmission Date: 20181010
  Serious: Yes (Life-Threatening, Other)
  Sender: FDA-Public Use
  Company Number: CA-AMGEN-CANSP2018098911

PATIENT
  Age: 65 Year
  Sex: Male
  Weight: 68 kg

DRUGS (12)
  1. FLEXERIL [Concomitant]
     Active Substance: CYCLOBENZAPRINE HYDROCHLORIDE
     Dosage: 10 MG, UNK
  2. HYDROMORPHONE [Concomitant]
     Active Substance: HYDROMORPHONE
  3. DECADRON [Concomitant]
     Active Substance: DEXAMETHASONE
  4. DOCETAXEL. [Concomitant]
     Active Substance: DOCETAXEL
     Route: 042
  5. EFFEXOR XR [Concomitant]
     Active Substance: VENLAFAXINE HYDROCHLORIDE
  6. LYRICA [Concomitant]
     Active Substance: PREGABALIN
  7. RIVOTRIL [Concomitant]
     Active Substance: CLONAZEPAM
  8. XGEVA [Suspect]
     Active Substance: DENOSUMAB
     Indication: PROSTATE CANCER METASTATIC
     Dosage: 120 MG, Q4WK
     Route: 058
  9. STEMETIL [Concomitant]
     Active Substance: PROCHLORPERAZINE MALEATE
  10. VITAMIN D [Concomitant]
     Active Substance: CHOLECALCIFEROL
  11. ZOLADEX [Concomitant]
     Active Substance: GOSERELIN ACETATE
  12. CALCIUM [Concomitant]
     Active Substance: CALCIUM

REACTIONS (3)
  - Hypophosphataemia [Recovering/Resolving]
  - Infusion [Recovering/Resolving]
  - Hypocalcaemia [Recovering/Resolving]
